FAERS Safety Report 9130437 (Version 1)
Quarter: 2013Q1

REPORT INFORMATION
  Report Type: Spontaneous
  Country: US (occurrence: US)
  Receive Date: 20130301
  Receipt Date: 20130301
  Transmission Date: 20140127
  Serious: No
  Sender: FDA-Public Use
  Company Number: US-009507513-1302USA011035

PATIENT
  Age: 16 Year
  Sex: Female
  Weight: 72.56 kg

DRUGS (2)
  1. IMPLANON [Suspect]
     Indication: CONTRACEPTION
     Dosage: 1 ROD FOR 3 YEARS
     Route: 059
     Dates: start: 20091208
  2. BACTRIM [Concomitant]

REACTIONS (7)
  - Movement disorder [Unknown]
  - Implant site effusion [Unknown]
  - Metrorrhagia [Unknown]
  - Dizziness [Unknown]
  - Headache [Unknown]
  - Device breakage [Unknown]
  - Incorrect drug administration duration [Unknown]
